FAERS Safety Report 22191865 (Version 1)
Quarter: 2023Q2

REPORT INFORMATION
  Report Type: Spontaneous
  Country: US (occurrence: US)
  Receive Date: 20230410
  Receipt Date: 20230410
  Transmission Date: 20230722
  Serious: Yes (Other)
  Sender: FDA-Public Use
  Company Number: US-PFIZER INC-PV202200050825

PATIENT
  Age: 78 Year
  Sex: Female

DRUGS (1)
  1. IBRANCE [Suspect]
     Active Substance: PALBOCICLIB
     Dosage: 1 TABLET ONCE DAILY, FOR 2 WEEKS ON FOLLOWED BY 2 WEEKS OFF
     Route: 048

REACTIONS (3)
  - Dementia [Unknown]
  - Off label use [Unknown]
  - Product use issue [Unknown]
